FAERS Safety Report 18446840 (Version 3)
Quarter: 2021Q2

REPORT INFORMATION
  Report Type: Spontaneous
  Country: JP (occurrence: JP)
  Receive Date: 20201030
  Receipt Date: 20210413
  Transmission Date: 20210717
  Serious: Yes (Death, Hospitalization, Other)
  Sender: FDA-Public Use
  Company Number: JP-SEATTLE GENETICS-2020SGN04496

PATIENT
  Age: 81 Year
  Sex: Female
  Weight: 60 kg

DRUGS (3)
  1. NEUART [Concomitant]
     Active Substance: ANTITHROMBIN III HUMAN
     Indication: DISSEMINATED INTRAVASCULAR COAGULATION
     Dosage: 1500 INTERNATIONAL UNIT, QD
     Route: 041
     Dates: start: 20200921, end: 20201014
  2. CEFTRIAXONE SODIUM. [Concomitant]
     Active Substance: CEFTRIAXONE SODIUM
     Indication: BACTERIAL INFECTION
     Dosage: 1 GRAM, QD
     Route: 041
     Dates: start: 20200918, end: 20200929
  3. ADCETRIS [Suspect]
     Active Substance: BRENTUXIMAB VEDOTIN
     Indication: PERIPHERAL T-CELL LYMPHOMA UNSPECIFIED
     Dosage: 78 MILLIGRAM, QD
     Route: 041
     Dates: start: 20200923, end: 20200923

REACTIONS (9)
  - Peripheral T-cell lymphoma unspecified [Fatal]
  - Platelet count decreased [Not Recovered/Not Resolved]
  - Febrile neutropenia [Recovering/Resolving]
  - Neutrophil count decreased [Recovered/Resolved]
  - Sepsis [Fatal]
  - Hepatic failure [Fatal]
  - Intestinal obstruction [Not Recovered/Not Resolved]
  - Disease progression [Fatal]
  - Renal disorder [Unknown]

NARRATIVE: CASE EVENT DATE: 20200930
